FAERS Safety Report 4853648-4 (Version None)
Quarter: 2005Q4

REPORT INFORMATION
  Report Type: 
  Country: None (occurrence: None)
  Receive Date: 20051212
  Receipt Date: 20051129
  Transmission Date: 20060501
  Serious: Yes (Death, Other)
  Sender: FDA-Public Use
  Company Number: GXKR2005JP01998

PATIENT
  Sex: 0

DRUGS (5)
  1. RIFAMPICIN [Suspect]
     Indication: TUBERCULOSIS
     Dosage: ORAL
     Route: 048
  2. ISONIAZID [Suspect]
     Indication: DISSEMINATED TUBERCULOSIS
  3. LEVOFLOXACIN [Suspect]
  4. STREPTOMYCIN [Suspect]
  5. ESANBUTOL(ETHAMBUTOL) [Suspect]
     Indication: DISSEMINATED TUBERCULOSIS

REACTIONS (4)
  - EOSINOPHIL COUNT INCREASED [None]
  - LIVER DISORDER [None]
  - RENAL DISORDER [None]
  - RESTRICTIVE CARDIOMYOPATHY [None]
